FAERS Safety Report 7967931-7 (Version None)
Quarter: 2011Q4

REPORT INFORMATION
  Report Type: 
  Country: None (occurrence: None)
  Receive Date: 20111208
  Receipt Date: 20111208
  Transmission Date: 20120403
  Serious: Yes (Hospitalization)
  Sender: FDA-Public Use
  Company Number: None

PATIENT
  Sex: Male
  Weight: 77.6 kg

DRUGS (7)
  1. CISPLATIN [Suspect]
  2. NEUPOGEN [Concomitant]
  3. MORPHINE [Concomitant]
  4. FLAGYL [Concomitant]
  5. ZOSYN [Concomitant]
  6. ROBITUSSIN DM [Concomitant]
  7. ATIVAN [Concomitant]

REACTIONS (6)
  - DIARRHOEA [None]
  - STOMATITIS [None]
  - CLOSTRIDIUM TEST POSITIVE [None]
  - FEBRILE NEUTROPENIA [None]
  - HYPOPHAGIA [None]
  - DEVICE OCCLUSION [None]
